FAERS Safety Report 7701718-5 (Version None)
Quarter: 2011Q3

REPORT INFORMATION
  Report Type: 
  Country: None (occurrence: None)
  Receive Date: 20110822
  Receipt Date: 20110818
  Transmission Date: 20111222
  Serious: Yes (Life-Threatening)
  Sender: FDA-Public Use
  Company Number: DE-BAYER-2011-074686

PATIENT
  Sex: Male
  Weight: 76 kg

DRUGS (3)
  1. AMIODARONE HCL [Concomitant]
     Indication: VENTRICULAR EXTRASYSTOLES
     Dosage: 250 MG, QD
     Route: 048
     Dates: start: 20070827
  2. SOTALOL HCL [Concomitant]
     Indication: VENTRICULAR EXTRASYSTOLES
     Dosage: 80 MG, BID
     Route: 048
     Dates: start: 20070827
  3. CIPROFLOXACIN [Suspect]
     Indication: DIVERTICULITIS
     Dosage: 500 MG, BID
     Route: 048
     Dates: start: 20110217

REACTIONS (1)
  - VENTRICULAR TACHYCARDIA [None]
